FAERS Safety Report 9465940 (Version 2)
Quarter: 2013Q3

REPORT INFORMATION
  Report Type: Spontaneous
  Country: US (occurrence: US)
  Receive Date: 20130820
  Receipt Date: 20130820
  Transmission Date: 20140515
  Serious: Yes (Hospitalization, Other)
  Sender: FDA-Public Use
  Company Number: US-ABBOTT-13P-163-1121407-00

PATIENT
  Sex: Female
  Weight: 73.55 kg

DRUGS (5)
  1. SYNTHROID [Suspect]
     Indication: HYPOTHYROIDISM
     Dates: start: 1999
  2. SYNTHROID [Suspect]
     Dosage: 1 3/8 PILL ON MONDAYS AND THURSDAY
  3. SYNTHROID [Suspect]
     Dosage: 1 1/4 PILL THE REST OF THE WEEK
  4. ENALAPRIL [Concomitant]
     Indication: HYPERTENSION
  5. DIAZEPAM [Concomitant]
     Indication: MUSCLE SPASMS

REACTIONS (7)
  - Secondary hypertension [Unknown]
  - Overdose [Recovered/Resolved]
  - Overdose [Unknown]
  - Drug intolerance [Not Recovered/Not Resolved]
  - Fatigue [Unknown]
  - Immune system disorder [Unknown]
  - Wrong technique in drug usage process [Unknown]
